FAERS Safety Report 12267018 (Version 2)
Quarter: 2016Q2

REPORT INFORMATION
  Report Type: Spontaneous
  Country: ES (occurrence: ES)
  Receive Date: 20160414
  Receipt Date: 20160613
  Transmission Date: 20160815
  Serious: Yes (Death)
  Sender: FDA-Public Use
  Company Number: ES-ACTELION-A-CH2016-134424

PATIENT
  Age: 48 Year
  Sex: Male

DRUGS (1)
  1. BOSENTAN. [Suspect]
     Active Substance: BOSENTAN
     Indication: PULMONARY FIBROSIS
     Route: 048

REACTIONS (2)
  - Pulmonary fibrosis [Fatal]
  - Disease progression [Fatal]
